FAERS Safety Report 9370578 (Version 1)
Quarter: 2013Q2

REPORT INFORMATION
  Report Type: Spontaneous
  Country: US (occurrence: US)
  Receive Date: 20130626
  Receipt Date: 20130626
  Transmission Date: 20140414
  Serious: Yes (Other)
  Sender: FDA-Public Use
  Company Number: US-ELI_LILLY_AND_COMPANY-US201306003727

PATIENT
  Age: 74 Year
  Sex: Female

DRUGS (1)
  1. EVISTA [Suspect]
     Indication: OSTEOPOROSIS

REACTIONS (7)
  - Hip fracture [Unknown]
  - Pelvic fracture [Unknown]
  - Multiple fractures [Unknown]
  - Body height decreased [Unknown]
  - Pain [Unknown]
  - Osteoporotic fracture [Unknown]
  - Upper limb fracture [Unknown]
